FAERS Safety Report 5958644-1 (Version None)
Quarter: 2008Q4

REPORT INFORMATION
  Report Type: 
  Country: None (occurrence: None)
  Receive Date: 20081119
  Receipt Date: 20081107
  Transmission Date: 20090506
  Serious: Yes (Other)
  Sender: FDA-Public Use
  Company Number: US-PFIZER INC-2008094073

PATIENT

DRUGS (1)
  1. GEODON [Suspect]

REACTIONS (2)
  - DYSKINESIA [None]
  - SEROTONIN SYNDROME [None]
